FAERS Safety Report 22290915 (Version 10)
Quarter: 2023Q2

REPORT INFORMATION
  Report Type: Spontaneous
  Country: US (occurrence: US)
  Receive Date: 20230506
  Receipt Date: 20230628
  Transmission Date: 20230722
  Serious: No
  Sender: FDA-Public Use
  Company Number: US-UNITED THERAPEUTICS-UNT-2023-012281

PATIENT
  Sex: Female
  Weight: 92.971 kg

DRUGS (7)
  1. REMODULIN [Suspect]
     Active Substance: TREPROSTINIL
     Indication: Pulmonary arterial hypertension
     Dosage: 0.058 ?G/KG (SELF-FILL CASSETTE WITH 3ML AT A RATE OF 37 MCL/HOUR), CONTINUING
     Route: 058
  2. REMODULIN [Suspect]
     Active Substance: TREPROSTINIL
     Dosage: 0.060 ?G/KG (SELF-FILL CASSETTE WITH 3ML AT A RATE OF 37 MCL/HOUR), CONTINUING
     Route: 058
  3. REMODULIN [Suspect]
     Active Substance: TREPROSTINIL
     Dosage: UNK (SELF-FILL CASSETTE WITH 3ML AT A RATE OF 36 MCL/HOUR), CONTINUING
     Route: 058
  4. REMODULIN [Suspect]
     Active Substance: TREPROSTINIL
     Dosage: 0.065 ?G/KG (SELF-FILL CASSETTE WITH 3 ML AT PUMP RATE 40 MCL/HOUR)
     Route: 058
  5. REMODULIN [Suspect]
     Active Substance: TREPROSTINIL
     Dosage: UNK, CONTINUING
     Route: 058
     Dates: start: 20210826
  6. OPSUMIT [Concomitant]
     Active Substance: MACITENTAN
     Indication: Product used for unknown indication
     Dosage: UNK
     Route: 065
  7. SILDENAFIL [Concomitant]
     Active Substance: SILDENAFIL
     Indication: Product used for unknown indication
     Dosage: UNK
     Route: 065

REACTIONS (23)
  - Device failure [Recovered/Resolved]
  - Wrong technique in product usage process [Unknown]
  - Unintentional medical device removal [Unknown]
  - Infusion site mass [Unknown]
  - Device adhesion issue [Recovered/Resolved]
  - Infusion site pain [Not Recovered/Not Resolved]
  - Visual impairment [Unknown]
  - Tremor [Unknown]
  - Hypoacusis [Unknown]
  - Device use error [Unknown]
  - Infusion site reaction [Not Recovered/Not Resolved]
  - Device leakage [Unknown]
  - Back pain [Unknown]
  - Device failure [Unknown]
  - Device failure [Unknown]
  - Device failure [Unknown]
  - Infusion site erythema [Unknown]
  - Echocardiogram abnormal [Unknown]
  - Device difficult to use [Unknown]
  - Feeling abnormal [Unknown]
  - Device maintenance issue [Unknown]
  - Infusion site discharge [Unknown]
  - Purulent discharge [Unknown]

NARRATIVE: CASE EVENT DATE: 20230101
